FAERS Safety Report 5859105-0 (Version None)
Quarter: 2008Q3

REPORT INFORMATION
  Report Type: 
  Country: None (occurrence: None)
  Receive Date: 20080825
  Receipt Date: 20080801
  Transmission Date: 20090109
  Serious: Yes (Hospitalization)
  Sender: FDA-Public Use
  Company Number: 080821-0000629

PATIENT
  Age: 41 Year
  Sex: Female

DRUGS (4)
  1. TRANXENE [Suspect]
     Indication: ANXIETY
     Dosage: ; PO
     Route: 048
     Dates: end: 20080602
  2. ESCITALOPRAM [Suspect]
     Indication: DEPRESSION
     Dosage: ; PO
     Route: 048
     Dates: end: 20000602
  3. ZYPREXA [Suspect]
     Indication: SCHIZOPHRENIA
     Dosage: ; PO
     Route: 048
     Dates: end: 20080604
  4. ATARAX [Suspect]
     Indication: ANXIETY
     Dosage: ; PO
     Route: 048
     Dates: end: 20080604

REACTIONS (3)
  - DERMATITIS BULLOUS [None]
  - DRUG TOXICITY [None]
  - MULTIPLE DRUG OVERDOSE INTENTIONAL [None]
